FAERS Safety Report 25202700 (Version 2)
Quarter: 2025Q3

REPORT INFORMATION
  Report Type: Spontaneous
  Country: EU (occurrence: EU)
  Receive Date: 20250416
  Receipt Date: 20250716
  Transmission Date: 20251021
  Serious: Yes (Other)
  Sender: ACCORD
  Company Number: None

PATIENT
  Age: 13 Year
  Sex: Female
  Weight: 68 kg

DRUGS (4)
  1. SERTRALINE [Suspect]
     Active Substance: SERTRALINE HYDROCHLORIDE
     Indication: Depression
     Dosage: 1X1
     Dates: start: 20201125, end: 20241213
  2. MELATONIN [Concomitant]
     Active Substance: MELATONIN
  3. LISDEXAMFETAMINE DIMESYLATE [Concomitant]
     Active Substance: LISDEXAMFETAMINE DIMESYLATE
  4. ETHINYL ESTRADIOL\LEVONORGESTREL [Concomitant]
     Active Substance: ETHINYL ESTRADIOL\LEVONORGESTREL
     Dates: start: 20220410

REACTIONS (1)
  - Multiple acyl-coenzyme A dehydrogenase deficiency [Unknown]

NARRATIVE: CASE EVENT DATE: 20220101
